FAERS Safety Report 16323874 (Version 1)
Quarter: 2019Q2

REPORT INFORMATION
  Report Type: Spontaneous
  Country: MX (occurrence: MX)
  Receive Date: 20190517
  Receipt Date: 20190517
  Transmission Date: 20190711
  Serious: Yes (Other)
  Sender: FDA-Public Use
  Company Number: MX-ROCHE-2320007

PATIENT
  Age: 60 Year
  Sex: Female
  Weight: 71.8 kg

DRUGS (8)
  1. AMLODIPINO [AMLODIPINE] [Concomitant]
     Indication: HYPERTENSION
  2. OMEPRAZOLE. [Concomitant]
     Active Substance: OMEPRAZOLE
  3. PREGABALIN. [Concomitant]
     Active Substance: PREGABALIN
     Route: 048
  4. ETORICOXIB. [Concomitant]
     Active Substance: ETORICOXIB
  5. ROACTEMRA [Suspect]
     Active Substance: TOCILIZUMAB
     Route: 042
     Dates: start: 2017
  6. ACETAMINOPHEN. [Concomitant]
     Active Substance: ACETAMINOPHEN
     Indication: HEADACHE
  7. ROACTEMRA [Suspect]
     Active Substance: TOCILIZUMAB
     Indication: RHEUMATOID ARTHRITIS
     Route: 042
     Dates: start: 2012
  8. LOSARTAN. [Concomitant]
     Active Substance: LOSARTAN
     Indication: HYPERTENSION

REACTIONS (3)
  - Pancreatic cyst [Recovered/Resolved]
  - Pancreatitis [Recovered/Resolved]
  - Hand deformity [Recovered/Resolved with Sequelae]

NARRATIVE: CASE EVENT DATE: 201603
